FAERS Safety Report 6898849-9 (Version None)
Quarter: 2010Q3

REPORT INFORMATION
  Report Type: 
  Country: None (occurrence: None)
  Receive Date: 20100802
  Receipt Date: 20071210
  Transmission Date: 20110219
  Serious: No
  Sender: FDA-Public Use
  Company Number: US-PFIZER INC-2007104268

PATIENT
  Sex: Female
  Weight: 95.25 kg

DRUGS (2)
  1. LYRICA [Suspect]
  2. CLONAZEPAM [Concomitant]

REACTIONS (3)
  - INCREASED APPETITE [None]
  - MOOD ALTERED [None]
  - SWELLING [None]
